FAERS Safety Report 4452496-7 (Version None)
Quarter: 2004Q3

REPORT INFORMATION
  Report Type: 
  Country: None (occurrence: None)
  Receive Date: 20040916
  Receipt Date: 20040903
  Transmission Date: 20050211
  Serious: Yes (Other)
  Sender: FDA-Public Use
  Company Number: 209019

PATIENT
  Age: 69 Year
  Sex: Male

DRUGS (1)
  1. ACTILYSE (ALTEPLASE) PWDR + SOLVENT, INFUSION SOLN [Suspect]
     Dosage: 63 MG, SINGLE, INTRAVENOUS
     Route: 042
     Dates: start: 20040817, end: 20040817

REACTIONS (7)
  - ATRIAL FIBRILLATION [None]
  - BRONCHIAL INFECTION [None]
  - CARDIAC FAILURE [None]
  - CARDIO-RESPIRATORY ARREST [None]
  - GENERAL PHYSICAL HEALTH DETERIORATION [None]
  - PULMONARY OEDEMA [None]
  - URINARY TRACT INFECTION [None]
